FAERS Safety Report 8561757-1 (Version None)
Quarter: 2012Q3

REPORT INFORMATION
  Report Type: 
  Country: None (occurrence: None)
  Receive Date: 20120802
  Receipt Date: 20120726
  Transmission Date: 20120928
  Serious: Yes (Other)
  Sender: FDA-Public Use
  Company Number: US-CELGENEUS-163-20785-12072891

PATIENT
  Age: 81 Year
  Sex: Male
  Weight: 64.9 kg

DRUGS (7)
  1. ASPIRIN [Concomitant]
     Dosage: 325 MILLIGRAM
     Route: 048
     Dates: start: 20090815
  2. PREDNISONE [Suspect]
     Dosage: 25 MILLIGRAM
     Route: 048
     Dates: start: 20090815
  3. THALOMID [Suspect]
     Dosage: 100 MILLIGRAM
     Route: 048
     Dates: start: 20110528, end: 20110722
  4. THALOMID [Suspect]
     Route: 048
  5. MELPHALAN HYDROCHLORIDE [Suspect]
     Dosage: 2.25 MILLIGRAM/SQ. METER
     Route: 048
     Dates: start: 20090815
  6. ASPIRIN [Concomitant]
     Dosage: 325 MILLIGRAM
     Route: 048
     Dates: start: 20110528
  7. THALOMID [Suspect]
     Dosage: 100 MILLIGRAM
     Route: 048
     Dates: start: 20090815

REACTIONS (1)
  - LEUKAEMIA [None]
